FAERS Safety Report 6314799-0 (Version None)
Quarter: 2009Q3

REPORT INFORMATION
  Report Type: 
  Country: None (occurrence: None)
  Receive Date: 20090819
  Receipt Date: 20090807
  Transmission Date: 20100115
  Serious: Yes (Death)
  Sender: FDA-Public Use
  Company Number: US-TYCO HEALTHCARE/MALLINCKRODT-T200901201

PATIENT
  Sex: Male
  Weight: 77.551 kg

DRUGS (7)
  1. RESTORIL [Suspect]
     Indication: DRUG USE FOR UNKNOWN INDICATION
     Dosage: 15 MG, UNK
  2. PROMETHAZINE [Suspect]
     Dosage: UNK
  3. LORTAB [Suspect]
     Indication: DRUG USE FOR UNKNOWN INDICATION
     Dosage: 10 MG/ 500 MG, UNK
  4. OPANA ER [Suspect]
     Indication: BACK PAIN
     Dosage: 20 MG, BID
     Dates: start: 20081229
  5. OPANA ER [Suspect]
     Dosage: 20 MG, Q12H
  6. VALIUM [Suspect]
     Indication: DRUG USE FOR UNKNOWN INDICATION
     Dosage: 10 MG, UNK
  7. VERAPAMIL [Suspect]

REACTIONS (1)
  - DEATH [None]
